FAERS Safety Report 25853672 (Version 1)
Quarter: 2025Q3

REPORT INFORMATION
  Report Type: Spontaneous
  Country: EU (occurrence: EU)
  Receive Date: 20250926
  Receipt Date: 20250926
  Transmission Date: 20251020
  Serious: Yes (Other)
  Sender: ALCON
  Company Number: EU-ALCON LABORATORIES-ALC2025FR005042

PATIENT

DRUGS (2)
  1. ATROPINE SULFATE [Suspect]
     Active Substance: ATROPINE SULFATE
     Indication: Fundoscopy
  2. ATROPINE [Suspect]
     Active Substance: ATROPINE
     Indication: Medication error
     Dates: start: 20250725, end: 20250726

REACTIONS (6)
  - Accidental overdose [Recovered/Resolved]
  - Incorrect dosage administered [Recovered/Resolved]
  - Product dispensing error [Recovered/Resolved]
  - Erythema [Recovered/Resolved]
  - Macule [Recovered/Resolved]
  - Product confusion [Recovered/Resolved]

NARRATIVE: CASE EVENT DATE: 20250725
